FAERS Safety Report 24800055 (Version 1)
Quarter: 2025Q1

REPORT INFORMATION
  Report Type: Spontaneous
  Country: IT (occurrence: IT)
  Receive Date: 20250102
  Receipt Date: 20250102
  Transmission Date: 20250408
  Serious: Yes (Other)
  Sender: NOVARTIS
  Company Number: None

PATIENT
  Age: 30 Year
  Sex: Female

DRUGS (2)
  1. TASIGNA [Suspect]
     Active Substance: NILOTINIB
     Indication: Chronic myeloid leukaemia
     Dosage: 300 MG, Q12H (150 MG 2 CPS OGNI 12 ORE)
     Route: 048
     Dates: start: 20210831, end: 20210913
  2. TASIGNA [Suspect]
     Active Substance: NILOTINIB
     Dosage: 150 MG, Q12H
     Route: 048
     Dates: start: 20210929, end: 20211005

REACTIONS (5)
  - Rash maculo-papular [Recovered/Resolved]
  - Headache [Recovered/Resolved]
  - Facial pain [Recovered/Resolved]
  - Hypertransaminasaemia [Recovered/Resolved]
  - Hyperbilirubinaemia [Recovering/Resolving]

NARRATIVE: CASE EVENT DATE: 20210913
